FAERS Safety Report 8776968 (Version 2)
Quarter: 2012Q4

REPORT INFORMATION
  Report Type: 
  Country: US (occurrence: US)
  Receive Date: 20120911
  Receipt Date: 20121004
  Transmission Date: 20130627
  Serious: Yes (Hospitalization)
  Sender: FDA-Public Use
  Company Number: US-GLAXOSMITHKLINE-A0992790A

PATIENT
  Age: 50 Year
  Sex: Female

DRUGS (1)
  1. FLOLAN [Suspect]
     Dosage: 30NGKM Continuous
     Route: 065
     Dates: start: 20120228

REACTIONS (3)
  - Fatigue [Unknown]
  - Oxygen saturation decreased [Recovered/Resolved]
  - Renal disorder [Unknown]
